FAERS Safety Report 5247424-0 (Version None)
Quarter: 2007Q1

REPORT INFORMATION
  Report Type: 
  Country: None (occurrence: None)
  Receive Date: 20070227
  Receipt Date: 20070215
  Transmission Date: 20070707
  Serious: Yes (Hospitalization, Other)
  Sender: FDA-Public Use
  Company Number: US-BAYER-200710524BWH

PATIENT
  Sex: Male

DRUGS (3)
  1. AVELOX [Suspect]
     Indication: PROSTATITIS
     Route: 048
  2. LEVAQUIN [Suspect]
     Indication: PROSTATITIS
     Route: 048
  3. CIPRO [Suspect]
     Indication: PROSTATITIS
     Route: 048

REACTIONS (13)
  - ANXIETY [None]
  - CEREBROVASCULAR ACCIDENT [None]
  - DYSPHAGIA [None]
  - FEELING ABNORMAL [None]
  - HEPATIC LESION [None]
  - INSOMNIA [None]
  - NIGHT BLINDNESS [None]
  - PARAESTHESIA [None]
  - PUPIL FIXED [None]
  - TREMOR [None]
  - UNEVALUABLE EVENT [None]
  - VISION BLURRED [None]
  - VISUAL ACUITY REDUCED [None]
